FAERS Safety Report 13756246 (Version 1)
Quarter: 2017Q3

REPORT INFORMATION
  Report Type: Spontaneous
  Country: US (occurrence: US)
  Receive Date: 20170714
  Receipt Date: 20170714
  Transmission Date: 20171127
  Serious: No
  Sender: FDA-Public Use
  Company Number: US-ELI_LILLY_AND_COMPANY-US201707003574

PATIENT
  Sex: Female

DRUGS (9)
  1. DULOXETINE. [Suspect]
     Active Substance: DULOXETINE
     Dosage: 15 MG, DAILY
     Route: 048
  2. DULOXETINE. [Suspect]
     Active Substance: DULOXETINE
     Indication: PANIC ATTACK
     Dosage: 30 MG, DAILY
     Route: 065
     Dates: end: 201606
  3. DULOXETINE. [Suspect]
     Active Substance: DULOXETINE
     Dosage: 15 MG, DAILY
     Route: 065
  4. DULOXETINE. [Suspect]
     Active Substance: DULOXETINE
     Indication: BACK PAIN
     Dosage: 60 MG, DAILY
     Route: 065
  5. CYMBALTA [Suspect]
     Active Substance: DULOXETINE HYDROCHLORIDE
     Indication: PANIC ATTACK
     Dosage: 60 MG, DAILY
     Route: 048
     Dates: start: 2013, end: 2016
  6. COENZYME Q10 [Concomitant]
     Active Substance: UBIDECARENONE
     Indication: PRODUCT USED FOR UNKNOWN INDICATION
  7. CYMBALTA [Suspect]
     Active Substance: DULOXETINE HYDROCHLORIDE
     Indication: BACK PAIN
  8. DULOXETINE. [Suspect]
     Active Substance: DULOXETINE
     Indication: BACK PAIN
     Dosage: 60 MG, DAILY
     Route: 065
     Dates: start: 2016
  9. DULOXETINE. [Suspect]
     Active Substance: DULOXETINE
     Indication: PANIC ATTACK
     Dosage: 30 MG, DAILY
     Route: 065

REACTIONS (6)
  - Dyspnoea [Recovered/Resolved]
  - Intentional product misuse [Unknown]
  - Withdrawal syndrome [Not Recovered/Not Resolved]
  - Chills [Not Recovered/Not Resolved]
  - Mental impairment [Not Recovered/Not Resolved]
  - Insomnia [Not Recovered/Not Resolved]

NARRATIVE: CASE EVENT DATE: 2016
